FAERS Safety Report 15737133 (Version 2)
Quarter: 2019Q1

REPORT INFORMATION
  Report Type: Spontaneous
  Country: US (occurrence: US)
  Receive Date: 20181218
  Receipt Date: 20190313
  Transmission Date: 20190417
  Serious: Yes (Other)
  Sender: FDA-Public Use
  Company Number: US-SA-2018SA340681

PATIENT
  Age: 30 Year
  Sex: Female
  Weight: 58.96 kg

DRUGS (4)
  1. TAXOTERE [Suspect]
     Active Substance: DOCETAXEL
     Indication: BREAST CANCER FEMALE
     Dosage: 133 MG Q3W
     Route: 042
     Dates: start: 20131204, end: 20131204
  2. NEOSAR [Concomitant]
     Active Substance: CYCLOPHOSPHAMIDE
     Dosage: UNK
     Route: 065
  3. TAXOTERE [Suspect]
     Active Substance: DOCETAXEL
     Dosage: 1333 MG Q3W
     Route: 042
     Dates: start: 20130516, end: 20130516
  4. LEXAPRO [Concomitant]
     Active Substance: ESCITALOPRAM OXALATE
     Dosage: UNK

REACTIONS (1)
  - Alopecia [Recovering/Resolving]

NARRATIVE: CASE EVENT DATE: 201311
